FAERS Safety Report 17238634 (Version 3)
Quarter: 2020Q1

REPORT INFORMATION
  Report Type: Report from Study
  Country: CO (occurrence: CO)
  Receive Date: 20200106
  Receipt Date: 20200312
  Transmission Date: 20200409
  Serious: Yes (Other)
  Sender: FDA-Public Use
  Company Number: CO-JNJFOC-20191244760

PATIENT
  Age: 22 Year
  Sex: Female
  Weight: 55 kg

DRUGS (4)
  1. SIMPONI [Suspect]
     Active Substance: GOLIMUMAB
     Route: 058
     Dates: start: 20180427, end: 20181123
  2. SIMPONI [Suspect]
     Active Substance: GOLIMUMAB
     Dosage: THE LATEST GOLIMUMAB ADMINISTRATION WAS ON OCT/31/2019
     Route: 058
     Dates: start: 20190820, end: 20191031
  3. SIMPONI [Suspect]
     Active Substance: GOLIMUMAB
     Indication: ANKYLOSING SPONDYLITIS
     Route: 058
     Dates: start: 20170330, end: 20180129
  4. SIMPONI [Suspect]
     Active Substance: GOLIMUMAB
     Route: 058
     Dates: start: 201812, end: 201902

REACTIONS (3)
  - Ankylosing spondylitis [Not Recovered/Not Resolved]
  - Influenza [Recovering/Resolving]
  - Pharyngitis [Recovering/Resolving]

NARRATIVE: CASE EVENT DATE: 201911
